FAERS Safety Report 15793424 (Version 1)
Quarter: 2019Q1

REPORT INFORMATION
  Report Type: Spontaneous
  Country: US (occurrence: US)
  Receive Date: 20190103
  Receipt Date: 20190103
  Transmission Date: 20190417
  Serious: No
  Sender: FDA-Public Use
  Company Number: None

PATIENT

DRUGS (1)
  1. ELITEK [Suspect]
     Active Substance: RASBURICASE
     Dosage: ?          OTHER FREQUENCY:SINGLE-USE VIAL;OTHER ROUTE:INJECTION?

REACTIONS (3)
  - Product preparation issue [None]
  - Product packaging issue [None]
  - Product dispensing error [None]
